FAERS Safety Report 10598466 (Version 1)
Quarter: 2014Q4

REPORT INFORMATION
  Report Type: Spontaneous
  Country: US (occurrence: None)
  Receive Date: 20141119
  Receipt Date: 20141119
  Transmission Date: 20150529
  Serious: No
  Sender: FDA-Public Use
  Company Number: 1000070474

PATIENT
  Age: 74 Year
  Sex: Male

DRUGS (5)
  1. SERTRALINE (SERTRALINE) (SERTARLINE) [Concomitant]
  2. LEVOFLOXACN (LEVOFLOXACIN) (LEVOFLOXACIN) [Concomitant]
  3. GABAPENTIN (GABAPENTIN) (GABAPENTIN) [Concomitant]
     Active Substance: GABAPENTIN
  4. PREDNISONE (PREDNISONE) (PREDNISONE) [Concomitant]
     Active Substance: PREDNISONE
  5. TUDORZA PRESSAIR [Suspect]
     Active Substance: ACLIDINIUM BROMIDE
     Indication: CHRONIC OBSTRUCTIVE PULMONARY DISEASE
     Dosage: 800MCG (400 MCG, 2 IN 1 D), RESPIRATORY (INHALATION)?
     Route: 055
     Dates: start: 20140808

REACTIONS (1)
  - Oropharyngeal pain [None]

NARRATIVE: CASE EVENT DATE: 201408
